FAERS Safety Report 8384497-0 (Version None)
Quarter: 2012Q2

REPORT INFORMATION
  Report Type: 
  Country: None (occurrence: None)
  Receive Date: 20120524
  Receipt Date: 20120513
  Transmission Date: 20120825
  Serious: Yes (Hospitalization, Other)
  Sender: FDA-Public Use
  Company Number: IT-ELI_LILLY_AND_COMPANY-IT201204008192

PATIENT
  Sex: Male

DRUGS (8)
  1. PANTOPRAZOLE [Concomitant]
     Dosage: 20 MG, UNK
  2. FUROSEMIDE [Concomitant]
     Dosage: 20 MG, UNK
  3. CANRENONE [Concomitant]
     Dosage: 100 MG, UNK
  4. RAMIPRIL [Concomitant]
     Dosage: 1.25 MG, UNK
  5. EFFIENT [Suspect]
     Indication: ACUTE MYOCARDIAL INFARCTION
     Dosage: UNK, UNKNOWN
     Route: 048
  6. ASPIRIN [Concomitant]
     Dosage: 100 MG, UNK
     Route: 048
  7. ROSUVASTATIN [Concomitant]
     Dosage: 20 MG, UNK
     Route: 048
  8. METOPROLOL [Concomitant]
     Dosage: 50 MG, UNK

REACTIONS (1)
  - THROMBOSIS IN DEVICE [None]
